FAERS Safety Report 14272829 (Version 1)
Quarter: 2017Q4

REPORT INFORMATION
  Report Type: Spontaneous
  Country: US (occurrence: US)
  Receive Date: 20171212
  Receipt Date: 20171212
  Transmission Date: 20180321
  Serious: Yes (Other)
  Sender: FDA-Public Use
  Company Number: None

PATIENT
  Sex: Female
  Weight: 74.25 kg

DRUGS (7)
  1. RANITIDINE. [Concomitant]
     Active Substance: RANITIDINE
  2. XOLAIR [Suspect]
     Active Substance: OMALIZUMAB
     Indication: PRURITUS
     Dosage: ?          QUANTITY:1 INJECTION(S);?
     Dates: start: 20171023, end: 20171023
  3. ZYRTEC [Concomitant]
     Active Substance: CETIRIZINE HYDROCHLORIDE
  4. VITAMIN B12 [Concomitant]
     Active Substance: CYANOCOBALAMIN
  5. DOXEPIN [Concomitant]
     Active Substance: DOXEPIN
  6. MONTELUKAST [Concomitant]
     Active Substance: MONTELUKAST SODIUM
  7. VITAMIN D3 [Concomitant]
     Active Substance: CHOLECALCIFEROL

REACTIONS (11)
  - Anxiety [None]
  - Headache [None]
  - Eyelid disorder [None]
  - Initial insomnia [None]
  - Pruritus [None]
  - Somnolence [None]
  - Feeling hot [None]
  - Acne [None]
  - Arthralgia [None]
  - Increased appetite [None]
  - Menstruation delayed [None]

NARRATIVE: CASE EVENT DATE: 20171023
